FAERS Safety Report 8584261-3 (Version None)
Quarter: 2012Q3

REPORT INFORMATION
  Report Type: 
  Country: None (occurrence: None)
  Receive Date: 20120810
  Receipt Date: 20120730
  Transmission Date: 20120928
  Serious: Yes (Hospitalization, Other)
  Sender: FDA-Public Use
  Company Number: US-PAR PHARMACEUTICAL, INC-2012SCPR004543

PATIENT

DRUGS (1)
  1. DOXYCYCLINE HCL [Suspect]
     Indication: SCLEROTHERAPY
     Dosage: UNK UNK, UNKNOWN
     Route: 026

REACTIONS (1)
  - HORNER'S SYNDROME [None]
